FAERS Safety Report 9603383 (Version 2)
Quarter: 2013Q4

REPORT INFORMATION
  Report Type: Report from Study
  Country: US (occurrence: US)
  Receive Date: 20131007
  Receipt Date: 20131007
  Transmission Date: 20140711
  Serious: Yes (Hospitalization, Disabling)
  Sender: FDA-Public Use
  Company Number: US-DENDREON CORPORATION-2013PROUSA02689

PATIENT
  Age: 88 Year
  Sex: Male
  Weight: 53.61 kg

DRUGS (18)
  1. SIPULEUCEL-T [Suspect]
     Indication: PROSTATE CANCER METASTATIC
     Dosage: 250 ML, SINGLE
     Route: 042
     Dates: start: 20120525, end: 20120525
  2. SIPULEUCEL-T [Suspect]
     Dosage: 250 ML, SINGLE
     Route: 042
     Dates: start: 20120608, end: 20120608
  3. SIPULEUCEL-T [Suspect]
     Dosage: 250 ML, SINGLE
     Route: 042
     Dates: start: 20120622, end: 20120622
  4. FLOMAX [Concomitant]
     Indication: BENIGN PROSTATIC HYPERPLASIA
     Dosage: 0.4 MG, QD
  5. ZOCOR [Concomitant]
     Indication: HYPERCHOLESTEROLAEMIA
     Dosage: 20 MG, QD
  6. CASODEX [Concomitant]
     Indication: PROSTATE CANCER
     Dosage: 50 MG, QD
  7. HYDROCHLOROTHIAZIDE [Concomitant]
     Indication: HYPERTENSION
     Dosage: 12.5 UNK, UNK
  8. PRINIVIL [Concomitant]
     Indication: HYPERTENSION
     Dosage: 10 UNK, UNK
  9. TYLENOL EXTRA STRENGTH [Concomitant]
     Indication: PAIN PROPHYLAXIS
     Dosage: 500 UNK, UNK
  10. DEXAMETHASONE [Concomitant]
     Indication: ANTIINFLAMMATORY THERAPY
     Dosage: 4 UNK, UNK
  11. XGEVA [Concomitant]
     Indication: PROSTATE CANCER
     Dosage: 120 UNK, UNK
  12. PERCOCET [Concomitant]
     Indication: ARTHRALGIA
     Dosage: 5/325
  13. NORCO [Concomitant]
     Indication: ARTHRALGIA
     Dosage: 5/325
  14. ZOFRAN [Concomitant]
     Indication: NAUSEA
     Dosage: 4 UNK, UNK
  15. ASPIRIN [Concomitant]
     Indication: CARDIOVASCULAR EVENT PROPHYLAXIS
     Dosage: 325 UNK, UNK
  16. ULTRAM [Concomitant]
     Indication: PAIN
     Dosage: 50 MG, Q 6 HOURS PRN
  17. ZANTAC [Concomitant]
     Indication: DYSPEPSIA
     Dosage: 150 MG, PRN QD
  18. HYDROCHLOROTHIAZIDE W/LISINOPRIL [Concomitant]
     Dosage: 12.5MG /10 MG, QD

REACTIONS (1)
  - Cerebrovascular accident [Not Recovered/Not Resolved]
